FAERS Safety Report 4310255-X (Version None)
Quarter: 2004Q1

REPORT INFORMATION
  Report Type: 
  Country: None (occurrence: None)
  Receive Date: 20040301
  Receipt Date: 20040301
  Transmission Date: 20041129
  Serious: Yes (Other)
  Sender: FDA-Public Use
  Company Number: None

PATIENT
  Sex: Female
  Weight: 58.9676 kg

DRUGS (2)
  1. PAXIL [Suspect]
     Indication: ANXIETY
     Dosage: 1 PER NIGHT ORAL
     Route: 048
     Dates: start: 20010917, end: 20040227
  2. PAXIL [Suspect]
     Indication: PANIC DISORDER
     Dosage: 1 PER NIGHT ORAL
     Route: 048
     Dates: start: 20010917, end: 20040227

REACTIONS (5)
  - ANXIETY [None]
  - DIARRHOEA [None]
  - DYSPEPSIA [None]
  - HYPERHIDROSIS [None]
  - MIDDLE INSOMNIA [None]
